FAERS Safety Report 9913971 (Version 8)
Quarter: 2015Q1

REPORT INFORMATION
  Report Type: Report from Study
  Country: US (occurrence: US)
  Receive Date: 20140220
  Receipt Date: 20150311
  Transmission Date: 20150721
  Serious: Yes (Hospitalization)
  Sender: FDA-Public Use
  Company Number: US-ACTELION-A-US2009-25342

PATIENT
  Age: 56 Year
  Sex: Female

DRUGS (6)
  1. ADCIRCA [Concomitant]
     Active Substance: TADALAFIL
  2. IRON [Concomitant]
     Active Substance: IRON
  3. REVATIO [Concomitant]
     Active Substance: SILDENAFIL CITRATE
  4. VENTAVIS [Suspect]
     Active Substance: ILOPROST
     Indication: PULMONARY ARTERIAL HYPERTENSION
     Dosage: 5 MCG, 6 TO 9 TIMES DAILY
     Route: 055
     Dates: start: 20091203, end: 20150213
  5. VENTAVIS [Suspect]
     Active Substance: ILOPROST
     Dosage: UNK
     Route: 055
     Dates: start: 200904
  6. VIAGRA [Concomitant]
     Active Substance: SILDENAFIL CITRATE

REACTIONS (15)
  - Glossodynia [Unknown]
  - Treatment noncompliance [Unknown]
  - Anaemia vitamin B12 deficiency [Unknown]
  - Drug dose omission [Unknown]
  - Transfusion reaction [Unknown]
  - Fatigue [Unknown]
  - Dyspnoea [Unknown]
  - Malaise [Unknown]
  - Chest discomfort [Unknown]
  - Speech disorder [Unknown]
  - Oral discomfort [Unknown]
  - Oedema [Unknown]
  - Anaemia [Recovering/Resolving]
  - Transfusion [Unknown]
  - Somnolence [Recovering/Resolving]

NARRATIVE: CASE EVENT DATE: 200904
